FAERS Safety Report 21675272 (Version 1)
Quarter: 2022Q4

REPORT INFORMATION
  Report Type: Spontaneous
  Country: JP (occurrence: JP)
  Receive Date: 20221202
  Receipt Date: 20221202
  Transmission Date: 20230113
  Serious: Yes (Death, Other)
  Sender: FDA-Public Use
  Company Number: JP-DSJP-DSJ-2022-143516

PATIENT
  Age: 62 Year
  Sex: Male

DRUGS (11)
  1. OLMESARTAN MEDOXOMIL [Suspect]
     Active Substance: OLMESARTAN MEDOXOMIL
     Indication: Hypertension
     Dosage: 10-20MG/DAY
     Route: 065
  2. CANDESARTAN CILEXETIL [Concomitant]
     Active Substance: CANDESARTAN CILEXETIL
     Indication: Hypertension
     Dosage: 8MG/DAY
     Route: 065
  3. BISOPROLOL FUMARATE [Concomitant]
     Active Substance: BISOPROLOL FUMARATE
     Dosage: 2.5MG/DAY
     Route: 065
  4. BISOPROLOL FUMARATE [Concomitant]
     Active Substance: BISOPROLOL FUMARATE
     Dosage: 5MG/DAY
     Route: 065
  5. AMLODIPINE BESYLATE [Concomitant]
     Active Substance: AMLODIPINE BESYLATE
     Indication: Hypertension
     Dosage: 5MG/DAY
     Route: 065
  6. AMLODIPINE BESYLATE [Concomitant]
     Active Substance: AMLODIPINE BESYLATE
     Dosage: 10MG/DAY
     Route: 065
  7. DOXAZOSIN [Concomitant]
     Active Substance: DOXAZOSIN MESYLATE
     Dosage: 1-16MG/DAY
     Route: 065
  8. METIROSINE [Concomitant]
     Dosage: 250 MG, BID
     Route: 048
  9. METIROSINE [Concomitant]
     Dosage: 250 MG, BID
     Route: 048
  10. PHENTOLAMINE [PHENTOLAMINE MESILATE] [Concomitant]
     Dosage: 10MG/DAY
     Route: 042
  11. PHENTOLAMINE [PHENTOLAMINE MESILATE] [Concomitant]
     Dosage: 5MG/DAY
     Route: 042

REACTIONS (4)
  - Disease progression [Fatal]
  - Thrombosis [Unknown]
  - Necrosis [Unknown]
  - Localised infection [Unknown]
